FAERS Safety Report 11894386 (Version 1)
Quarter: 2016Q1

REPORT INFORMATION
  Report Type: Spontaneous
  Country: US (occurrence: US)
  Receive Date: 20160107
  Receipt Date: 20160107
  Transmission Date: 20160526
  Serious: Yes (Hospitalization)
  Sender: FDA-Public Use
  Company Number: US-ROCHE-ITM201504IM013616

PATIENT
  Sex: Female
  Weight: 83.99 kg

DRUGS (3)
  1. ESBRIET [Suspect]
     Active Substance: PIRFENIDONE
     Route: 048
     Dates: start: 2015
  2. ESBRIET [Suspect]
     Active Substance: PIRFENIDONE
     Dosage: 2 CAPS PO TID
     Route: 048
     Dates: start: 20150421
  3. ESBRIET [Suspect]
     Active Substance: PIRFENIDONE
     Indication: IDIOPATHIC PULMONARY FIBROSIS
     Route: 048
     Dates: start: 20150421

REACTIONS (12)
  - Weight decreased [Unknown]
  - Oesophageal pain [Unknown]
  - Chronic obstructive pulmonary disease [Unknown]
  - Asthenia [Unknown]
  - Vomiting [Unknown]
  - Nausea [Unknown]
  - Abdominal discomfort [Unknown]
  - Decreased appetite [Unknown]
  - Heart rate increased [Unknown]
  - Fatigue [Unknown]
  - Dyspepsia [Unknown]
  - Bronchitis [Unknown]

NARRATIVE: CASE EVENT DATE: 2015
